FAERS Safety Report 9410680 (Version 1)
Quarter: 2013Q2

REPORT INFORMATION
  Report Type: Spontaneous
  Country: US (occurrence: US)
  Receive Date: 20130424
  Receipt Date: 20130424
  Transmission Date: 20140414
  Serious: Yes (Life-Threatening, Hospitalization, Other)
  Sender: FDA-Public Use
  Company Number: 2013P1004830

PATIENT
  Age: 67 Year
  Sex: Male

DRUGS (4)
  1. INFUMORPH [Suspect]
     Indication: MUSCLE SPASTICITY
     Route: 037
  2. INFUMORPH [Suspect]
     Indication: MUSCLE SPASTICITY
     Route: 037
  3. BACLOFEN [Suspect]
     Indication: MUSCLE SPASTICITY
     Route: 037
  4. BACLOFEN [Suspect]
     Indication: MUSCLE SPASTICITY
     Route: 037

REACTIONS (10)
  - Hypertension [None]
  - Convulsion [None]
  - Mental status changes [None]
  - Rhabdomyolysis [None]
  - Muscle spasticity [None]
  - Muscle spasms [None]
  - Underdose [None]
  - Drug withdrawal syndrome [None]
  - Device issue [None]
  - Pain [None]
